FAERS Safety Report 16207551 (Version 1)
Quarter: 2019Q2

REPORT INFORMATION
  Report Type: Spontaneous
  Country: US (occurrence: US)
  Receive Date: 20190417
  Receipt Date: 20190417
  Transmission Date: 20190711
  Serious: Yes (Other)
  Sender: FDA-Public Use
  Company Number: US-TEVA-2019-US-1038025

PATIENT
  Age: 60 Year
  Sex: Female

DRUGS (3)
  1. MESALAMINE DELAYED-RELEASE TABLETS [Suspect]
     Active Substance: MESALAMINE
     Dosage: ONE TABLET TWICE PER DAY
     Route: 065
     Dates: start: 2019
  2. CLINDAMYCIN CREAM [Concomitant]
     Active Substance: CLINDAMYCIN
     Route: 061
  3. MESALAMINE DELAYED-RELEASE TABLETS [Suspect]
     Active Substance: MESALAMINE
     Indication: COLITIS ULCERATIVE
     Dosage: DOSE STRENGTH: 1.2 ; TWO TABLETS ONCE PER DAY
     Route: 065
     Dates: start: 201902

REACTIONS (6)
  - Rectal haemorrhage [Recovered/Resolved]
  - Nasopharyngitis [Unknown]
  - Rash [Not Recovered/Not Resolved]
  - Inappropriate schedule of product administration [Unknown]
  - Bacterial infection [Unknown]
  - Influenza like illness [Unknown]

NARRATIVE: CASE EVENT DATE: 201903
